FAERS Safety Report 5413034-5 (Version None)
Quarter: 2007Q3

REPORT INFORMATION
  Report Type: 
  Country: None (occurrence: None)
  Receive Date: 20070813
  Receipt Date: 20070803
  Transmission Date: 20080115
  Serious: Yes (Hospitalization, Other)
  Sender: FDA-Public Use
  Company Number: JP-PFIZER INC-2007054434

PATIENT
  Sex: Male

DRUGS (14)
  1. LIPITOR [Suspect]
     Indication: HYPERLIPIDAEMIA
     Route: 048
     Dates: start: 20070515, end: 20070604
  2. BASEN [Concomitant]
     Indication: DIABETES MELLITUS
     Route: 048
  3. INSULIN [Concomitant]
     Indication: DIABETES MELLITUS
     Route: 058
  4. TAMSULOSIN HCL [Concomitant]
     Indication: BENIGN PROSTATIC HYPERPLASIA
     Route: 048
  5. DETRUSITOL [Concomitant]
     Indication: HYPERTONIC BLADDER
     Route: 048
     Dates: start: 20070406, end: 20070617
  6. PLETAL [Concomitant]
     Indication: CEREBRAL INFARCTION
     Route: 048
  7. MUCOSTA [Concomitant]
     Indication: GASTRITIS
     Route: 048
     Dates: start: 20070328
  8. LOSARTAN POTASSIUM [Concomitant]
     Indication: HYPERTENSION
     Route: 048
     Dates: start: 20070426
  9. ASPIRIN [Concomitant]
     Indication: CEREBRAL INFARCTION
     Route: 048
     Dates: start: 20070329
  10. MAGNESIUM OXIDE [Concomitant]
     Indication: CONSTIPATION
     Route: 048
     Dates: start: 20070420
  11. ALLOPURINOL [Concomitant]
     Indication: HYPERURICAEMIA
     Route: 048
     Dates: start: 20070508
  12. NOVORAPID [Concomitant]
     Indication: DIABETES MELLITUS
     Dosage: TEXT:12 UNITS TWICE DAILY
     Route: 058
     Dates: start: 20070419, end: 20070531
  13. HUMALOG [Concomitant]
     Indication: DIABETES MELLITUS
     Dosage: TEXT:10 TO 16 UNITS THREE TIMES DAILY
     Route: 058
     Dates: start: 20070531
  14. HUMACART-N [Concomitant]
     Indication: DIABETES MELLITUS
     Dosage: TEXT:10 TO 16 UNITS ONCE DAILY
     Route: 058
     Dates: start: 20070531

REACTIONS (1)
  - DIABETES MELLITUS [None]
